FAERS Safety Report 23958999 (Version 1)
Quarter: 2024Q2

REPORT INFORMATION
  Report Type: Spontaneous
  Country: US (occurrence: None)
  Receive Date: 20240611
  Receipt Date: 20240611
  Transmission Date: 20240716
  Serious: Yes (Hospitalization, Other)
  Sender: FDA-Public Use
  Company Number: 2024A129238

PATIENT
  Age: 25742 Day
  Sex: Male

DRUGS (3)
  1. FARXIGA [Suspect]
     Active Substance: DAPAGLIFLOZIN PROPANEDIOL
     Indication: Renal disorder
     Route: 048
     Dates: start: 20240429, end: 20240523
  2. FARXIGA [Suspect]
     Active Substance: DAPAGLIFLOZIN PROPANEDIOL
     Indication: Blood pressure abnormal
     Route: 048
     Dates: start: 20240429, end: 20240523
  3. LOSARTAN [Concomitant]
     Active Substance: LOSARTAN
     Indication: Hypertension

REACTIONS (7)
  - Escherichia sepsis [Recovered/Resolved]
  - Blood pressure decreased [Recovered/Resolved]
  - Kidney infection [Recovered/Resolved]
  - Urinary tract infection [Unknown]
  - Influenza [Recovered/Resolved]
  - Pollakiuria [Unknown]
  - Polydipsia [Unknown]

NARRATIVE: CASE EVENT DATE: 20240521
